FAERS Safety Report 24351857 (Version 1)
Quarter: 2024Q3

REPORT INFORMATION
  Report Type: Spontaneous
  Country: US (occurrence: US)
  Receive Date: 20240923
  Receipt Date: 20240923
  Transmission Date: 20241016
  Serious: No
  Sender: BAYER
  Company Number: US-BAYER-2024A132212

PATIENT
  Age: 57 Year
  Sex: Male
  Weight: 327 kg

DRUGS (13)
  1. ALEVE [Suspect]
     Active Substance: NAPROXEN SODIUM
     Indication: Headache
  2. TYVASO DPI [Suspect]
     Active Substance: TREPROSTINIL
     Indication: Lung disorder
     Dosage: 16 ?G8, QID
     Route: 045
     Dates: start: 20240708, end: 20240713
  3. METOPROLOL SUCCINATE [Suspect]
     Active Substance: METOPROLOL SUCCINATE
  4. FUROSEMIDE [Concomitant]
     Active Substance: FUROSEMIDE
  5. SPIRIVA [Concomitant]
     Active Substance: TIOTROPIUM BROMIDE MONOHYDRATE
  6. JARDIANCE [Concomitant]
     Active Substance: EMPAGLIFLOZIN
  7. ENTRESTO [Concomitant]
     Active Substance: SACUBITRIL\VALSARTAN
  8. Ambrisentan ab [Concomitant]
  9. ELIQUIS [Concomitant]
     Active Substance: APIXABAN
  10. ALBUTEROL [Concomitant]
     Active Substance: ALBUTEROL
  11. SIMVASTATIN [Concomitant]
     Active Substance: SIMVASTATIN
  12. DIGOXIN [Concomitant]
     Active Substance: DIGOXIN
  13. TADALAFIL [Concomitant]
     Active Substance: TADALAFIL

REACTIONS (5)
  - Cough [None]
  - Headache [None]
  - Oropharyngeal discomfort [None]
  - Insomnia [None]
  - Therapy non-responder [None]

NARRATIVE: CASE EVENT DATE: 20240101
